FAERS Safety Report 9357830 (Version 1)
Quarter: 2013Q2

REPORT INFORMATION
  Report Type: Spontaneous
  Country: FR (occurrence: FR)
  Receive Date: 20130620
  Receipt Date: 20130620
  Transmission Date: 20140414
  Serious: Yes (Hospitalization)
  Sender: FDA-Public Use
  Company Number: FR-SANOFI-AVENTIS-2013SA061116

PATIENT
  Age: 74 Year
  Sex: Female

DRUGS (5)
  1. STILNOX [Suspect]
     Indication: PRODUCT USED FOR UNKNOWN INDICATION
     Route: 048
     Dates: start: 20130215, end: 20130215
  2. ZOPICLONE [Suspect]
     Indication: PRODUCT USED FOR UNKNOWN INDICATION
     Route: 048
     Dates: start: 20130215, end: 20130215
  3. CLONAZEPAM [Suspect]
     Indication: PRODUCT USED FOR UNKNOWN INDICATION
     Route: 048
     Dates: start: 20130215, end: 20130215
  4. CYAMEMAZINE [Suspect]
     Indication: PRODUCT USED FOR UNKNOWN INDICATION
     Route: 048
     Dates: start: 20130215
  5. DEPAKOTE [Concomitant]
     Route: 048

REACTIONS (3)
  - Pneumonia aspiration [Recovered/Resolved]
  - Coma [Recovered/Resolved]
  - Intentional overdose [Unknown]
